FAERS Safety Report 17839060 (Version 4)
Quarter: 2025Q3

REPORT INFORMATION
  Report Type: Spontaneous
  Country: GB (occurrence: GB)
  Receive Date: 20200529
  Receipt Date: 20250703
  Transmission Date: 20251020
  Serious: Yes (Other)
  Sender: AUROBINDO
  Company Number: GB-EMA-DD-20200518-PRABHAKAR_D-193018

PATIENT
  Age: 63 Year
  Sex: Male

DRUGS (3)
  1. TRANEXAMIC ACID [Suspect]
     Active Substance: TRANEXAMIC ACID
     Indication: Product used for unknown indication
     Route: 065
  2. GENTAMICIN [Suspect]
     Active Substance: GENTAMICIN
     Indication: Product used for unknown indication
     Route: 065
  3. TARGOCID [Suspect]
     Active Substance: TEICOPLANIN
     Indication: Prophylaxis
     Route: 042

REACTIONS (3)
  - Hypotension [Unknown]
  - Anaphylactic reaction [Unknown]
  - Flushing [Unknown]
